FAERS Safety Report 6112832-2 (Version None)
Quarter: 2009Q1

REPORT INFORMATION
  Report Type: 
  Country: None (occurrence: None)
  Receive Date: 20090312
  Receipt Date: 20090304
  Transmission Date: 20090719
  Serious: Yes (Hospitalization)
  Sender: FDA-Public Use
  Company Number: US-ASTRAZENECA-2009UW05772

PATIENT
  Age: 28602 Day
  Sex: Female
  Weight: 60.8 kg

DRUGS (2)
  1. NEXIUM [Suspect]
     Indication: DYSPEPSIA
     Route: 048
  2. NEXIUM [Suspect]
     Indication: GASTRITIS
     Route: 048

REACTIONS (2)
  - PNEUMONIA [None]
  - THROMBOSIS [None]
